FAERS Safety Report 20213471 (Version 3)
Quarter: 2022Q2

REPORT INFORMATION
  Report Type: Report from Study
  Country: US (occurrence: US)
  Receive Date: 20211221
  Receipt Date: 20220518
  Transmission Date: 20220720
  Serious: Yes (Hospitalization)
  Sender: FDA-Public Use
  Company Number: US-EXELIXIS-CABO-21043550

PATIENT
  Sex: Male

DRUGS (2)
  1. CABOMETYX [Suspect]
     Active Substance: CABOZANTINIB S-MALATE
     Indication: Renal cancer
     Dosage: 20 MG, QD
     Route: 048
     Dates: start: 20200205
  2. CABOMETYX [Suspect]
     Active Substance: CABOZANTINIB S-MALATE
     Dosage: 20 MG, QD
     Route: 048
     Dates: start: 20220502

REACTIONS (8)
  - Cholelithiasis [Unknown]
  - Cholecystitis infective [Unknown]
  - Jaundice [Unknown]
  - Liver disorder [Unknown]
  - Throat tightness [Unknown]
  - Pneumonia [Unknown]
  - Heart rate increased [Unknown]
  - Blood pressure increased [Unknown]
